FAERS Safety Report 6858064-1 (Version None)
Quarter: 2010Q3

REPORT INFORMATION
  Report Type: 
  Country: None (occurrence: None)
  Receive Date: 20100719
  Receipt Date: 20080410
  Transmission Date: 20110219
  Serious: No
  Sender: FDA-Public Use
  Company Number: US-PFIZER INC-2008008992

PATIENT
  Age: 48 Year
  Sex: Female
  Weight: 48.5 kg

DRUGS (5)
  1. CHANTIX [Suspect]
     Indication: SMOKING CESSATION THERAPY
     Route: 048
     Dates: start: 20080101
  2. SYNTHROID [Concomitant]
  3. ENALAPRIL MALEATE [Concomitant]
  4. INSULIN [Concomitant]
  5. VITAMINS [Concomitant]

REACTIONS (1)
  - BLOOD GLUCOSE INCREASED [None]
